FAERS Safety Report 12183781 (Version 1)
Quarter: 2016Q1

REPORT INFORMATION
  Report Type: Spontaneous
  Country: DE (occurrence: DE)
  Receive Date: 20160316
  Receipt Date: 20160316
  Transmission Date: 20160526
  Serious: Yes (Congenital Anomaly, Other)
  Sender: FDA-Public Use
  Company Number: GXKR2016DE001368

PATIENT

DRUGS (2)
  1. ACIDO FOLICO//FOLIC ACID [Concomitant]
     Active Substance: FOLIC ACID
     Indication: PROPHYLAXIS OF NEURAL TUBE DEFECT
     Route: 064
  2. VALPROATE SODIUM. [Suspect]
     Active Substance: VALPROATE SODIUM
     Indication: EPILEPSY
     Dosage: 1000 [MG/D]
     Route: 064
     Dates: start: 20150222, end: 20151120

REACTIONS (2)
  - Small for dates baby [Unknown]
  - Polydactyly [Unknown]

NARRATIVE: CASE EVENT DATE: 20151120
